FAERS Safety Report 16701376 (Version 1)
Quarter: 2019Q3

REPORT INFORMATION
  Report Type: Report from Study
  Country: US (occurrence: US)
  Receive Date: 20190814
  Receipt Date: 20190814
  Transmission Date: 20191004
  Serious: Yes (Hospitalization)
  Sender: FDA-Public Use
  Company Number: US-BAYER-2019-146447

PATIENT
  Age: 74 Year
  Sex: Female

DRUGS (1)
  1. BETASERON [Suspect]
     Active Substance: INTERFERON BETA-1B
     Indication: MULTIPLE SCLEROSIS
     Dosage: 0.25 MG
     Route: 058

REACTIONS (7)
  - Hypotension [None]
  - Hallucination [None]
  - Aphasia [None]
  - Psychotic disorder [None]
  - Gait inability [None]
  - Abnormal behaviour [None]
  - Heart rate decreased [None]

NARRATIVE: CASE EVENT DATE: 201907
